FAERS Safety Report 5349313-X (Version None)
Quarter: 2007Q2

REPORT INFORMATION
  Report Type: 
  Country: None (occurrence: None)
  Receive Date: 20070607
  Receipt Date: 20070604
  Transmission Date: 20071010
  Serious: Yes (Hospitalization)
  Sender: FDA-Public Use
  Company Number: B0473585A

PATIENT
  Age: 76 Year
  Sex: Female

DRUGS (5)
  1. VALTREX [Suspect]
     Indication: HERPES ZOSTER
     Dosage: 1000MG THREE TIMES PER DAY
     Route: 048
     Dates: start: 20070526, end: 20070528
  2. MERCAZOLE [Concomitant]
     Route: 065
  3. ARASENA-A [Concomitant]
     Route: 061
  4. RINDERON [Concomitant]
     Route: 065
  5. METOPROLOL TARTRATE [Concomitant]
     Route: 048

REACTIONS (2)
  - DYSURIA [None]
  - RENAL FAILURE ACUTE [None]
